FAERS Safety Report 14364436 (Version 1)
Quarter: 2018Q1

REPORT INFORMATION
  Report Type: Spontaneous
  Country: US (occurrence: US)
  Receive Date: 20180106
  Receipt Date: 20180106
  Transmission Date: 20180509
  Serious: No
  Sender: FDA-Public Use
  Company Number: None

PATIENT
  Age: 66 Year
  Sex: Female

DRUGS (1)
  1. ENBREL [Suspect]
     Active Substance: ETANERCEPT
     Indication: RHEUMATOID ARTHRITIS
     Dosage: ROUTE - INJECTION
     Dates: start: 20171004

REACTIONS (2)
  - Drug dose omission [None]
  - Nasopharyngitis [None]

NARRATIVE: CASE EVENT DATE: 20171222
